FAERS Safety Report 9847350 (Version 1)
Quarter: 2014Q1

REPORT INFORMATION
  Report Type: Spontaneous
  Country: US (occurrence: US)
  Receive Date: 20140127
  Receipt Date: 20140127
  Transmission Date: 20141002
  Serious: No
  Sender: FDA-Public Use
  Company Number: US-MYLANLABS-2013S1026820

PATIENT
  Sex: Male

DRUGS (2)
  1. FENOFIBRATE TABLETS [Suspect]
     Indication: BLOOD CHOLESTEROL INCREASED
     Route: 048
     Dates: start: 2012, end: 2012
  2. METOPROLOL [Concomitant]
     Indication: HYPERTENSION

REACTIONS (5)
  - Cough [Recovered/Resolved]
  - Pain in extremity [Recovered/Resolved]
  - Pruritus generalised [Recovered/Resolved]
  - Insomnia [Recovered/Resolved]
  - Reaction to drug excipients [Recovered/Resolved]
